FAERS Safety Report 4319452-0 (Version None)
Quarter: 2004Q1

REPORT INFORMATION
  Report Type: 
  Country: None (occurrence: None)
  Receive Date: 20040316
  Receipt Date: 20040301
  Transmission Date: 20041129
  Serious: Yes (Other)
  Sender: FDA-Public Use
  Company Number: USA040260333

PATIENT
  Age: 61 Year
  Sex: Female

DRUGS (11)
  1. XIGRIS [Suspect]
     Indication: SEPSIS
     Dosage: 24 UG/KG/HR/OTHER
     Route: 050
     Dates: start: 20040212, end: 20040215
  2. FORTAL (CEFTAZIDIME) [Concomitant]
  3. VANCOMYCIN HYDROCHLORIDE [Concomitant]
  4. AMPHOTERICIN B [Concomitant]
  5. DIFLUCAN [Concomitant]
  6. BACTRIM [Concomitant]
  7. PRIMAXIN [Concomitant]
  8. TPN [Concomitant]
  9. DOPAMINE HCL [Concomitant]
  10. DOBUTAMINE [Concomitant]
  11. LEVOPHED [Concomitant]

REACTIONS (4)
  - ACTIVATED PARTIAL THROMBOPLASTIN TIME PROLONGED [None]
  - CONDITION AGGRAVATED [None]
  - PLATELET COUNT DECREASED [None]
  - SEPSIS [None]
